FAERS Safety Report 11674692 (Version 1)
Quarter: 2015Q4

REPORT INFORMATION
  Report Type: Spontaneous
  Country: US (occurrence: US)
  Receive Date: 20151027
  Receipt Date: 20151027
  Transmission Date: 20160304
  Serious: No
  Sender: FDA-Public Use
  Company Number: US-ELI_LILLY_AND_COMPANY-US201008003371

PATIENT
  Age: 87 Year
  Sex: Female

DRUGS (1)
  1. FORTEO [Suspect]
     Active Substance: TERIPARATIDE
     Dosage: 20 UG, DAILY (1/D)
     Dates: start: 20100810

REACTIONS (8)
  - Erythema [Recovered/Resolved]
  - Pain [Unknown]
  - Feeling hot [Unknown]
  - Injection site warmth [Unknown]
  - Hypoaesthesia [Recovering/Resolving]
  - Pruritus [Recovered/Resolved]
  - Back pain [Recovering/Resolving]
  - Injection site erythema [Unknown]

NARRATIVE: CASE EVENT DATE: 20100810
